FAERS Safety Report 11808559 (Version 1)
Quarter: 2015Q4

REPORT INFORMATION
  Report Type: Spontaneous
  Country: US (occurrence: US)
  Receive Date: 20151207
  Receipt Date: 20151207
  Transmission Date: 20160305
  Serious: No
  Sender: FDA-Public Use
  Company Number: US-ROCHE-1464619

PATIENT
  Age: 63 Year
  Sex: Female

DRUGS (2)
  1. LUCENTIS [Suspect]
     Active Substance: RANIBIZUMAB
     Indication: SWELLING
  2. LUCENTIS [Suspect]
     Active Substance: RANIBIZUMAB
     Indication: DRY AGE-RELATED MACULAR DEGENERATION
     Route: 050
     Dates: start: 20140916

REACTIONS (2)
  - Ocular discomfort [Recovered/Resolved]
  - Headache [Recovered/Resolved]

NARRATIVE: CASE EVENT DATE: 20140916
